FAERS Safety Report 18269336 (Version 1)
Quarter: 2020Q3

REPORT INFORMATION
  Report Type: Spontaneous
  Country: CO (occurrence: CO)
  Receive Date: 20200915
  Receipt Date: 20200915
  Transmission Date: 20201103
  Serious: Yes (Hospitalization)
  Sender: FDA-Public Use
  Company Number: CO-JAZZ-2020-CO-009622

PATIENT
  Age: 11 Year
  Sex: Female

DRUGS (5)
  1. VINCRISTINE [Concomitant]
     Active Substance: VINCRISTINE
     Indication: PRODUCT USED FOR UNKNOWN INDICATION
     Dosage: 2 MILLIGRAM
     Route: 042
     Dates: start: 20200721, end: 20200726
  2. DAUNORUBICIN [Concomitant]
     Active Substance: DAUNORUBICIN
     Indication: PRODUCT USED FOR UNKNOWN INDICATION
     Dosage: 38.5 MILLIGRAM
     Route: 042
     Dates: start: 20200725
  3. KIDROLASE [Suspect]
     Active Substance: ASPARAGINASE
     Indication: ACUTE LYMPHOCYTIC LEUKAEMIA
     Dosage: 3200 INTERNATIONAL UNIT
     Route: 042
     Dates: start: 20200727, end: 20200727
  4. IFOSFAMIDE. [Concomitant]
     Active Substance: IFOSFAMIDE
     Indication: PRODUCT USED FOR UNKNOWN INDICATION
     Dosage: 1025 MILLIGRAM
     Route: 042
     Dates: start: 20200722, end: 20200724
  5. METHOTREXATE. [Concomitant]
     Active Substance: METHOTREXATE
     Indication: PRODUCT USED FOR UNKNOWN INDICATION
     Dosage: 6400 MILLIGRAM
     Dates: start: 20200721

REACTIONS (3)
  - Chest pain [Recovered/Resolved]
  - Cough [Recovered/Resolved]
  - Hypotension [Recovered/Resolved]

NARRATIVE: CASE EVENT DATE: 20200727
